FAERS Safety Report 23267123 (Version 1)
Quarter: 2023Q4

REPORT INFORMATION
  Report Type: Spontaneous
  Country: TH (occurrence: TH)
  Receive Date: 20231206
  Receipt Date: 20231206
  Transmission Date: 20240110
  Serious: Yes (Hospitalization)
  Sender: FDA-Public Use
  Company Number: TH-PFIZER INC-PV202300196594

PATIENT
  Age: 55 Year
  Sex: Female

DRUGS (1)
  1. XALKORI [Suspect]
     Active Substance: CRIZOTINIB
     Indication: Non-small cell lung cancer
     Dosage: 250 MG TWICE DAILY
     Route: 048
     Dates: start: 20231108

REACTIONS (3)
  - Eye infection [Unknown]
  - Blindness [Unknown]
  - Eye operation [Unknown]
